FAERS Safety Report 4301478-4 (Version None)
Quarter: 2004Q1

REPORT INFORMATION
  Report Type: 
  Country: None (occurrence: None)
  Receive Date: 20040219
  Receipt Date: 20040209
  Transmission Date: 20041129
  Serious: Yes (Hospitalization)
  Sender: FDA-Public Use
  Company Number: 2004198318FR

PATIENT
  Age: 56 Year
  Sex: Female
  Weight: 60 kg

DRUGS (3)
  1. EPIRUBICIN HCL [Suspect]
     Indication: BREAST CANCER
     Dosage: 160 MG, CYCLIC
     Dates: start: 20031203, end: 20040206
  2. COMPARATOR-CYCLOPHOSPHAMIDE [Suspect]
     Indication: BREAST CANCER
     Dosage: 810 MG, CYCLIC
     Dates: start: 20031203, end: 20040206
  3. FLUOROURACIL [Suspect]
     Indication: BREAST CANCER
     Dosage: 810 MG, CYCLIC
     Dates: start: 20031203, end: 20040206

REACTIONS (1)
  - PYREXIA [None]
